FAERS Safety Report 4289640-0 (Version None)
Quarter: 2004Q1

REPORT INFORMATION
  Report Type: 
  Country: None (occurrence: None)
  Receive Date: 20040206
  Receipt Date: 20040129
  Transmission Date: 20041129
  Serious: Yes (Hospitalization)
  Sender: FDA-Public Use
  Company Number: FRP03000733

PATIENT
  Age: 69 Year
  Sex: Female

DRUGS (3)
  1. ACTONEL [Suspect]
     Indication: OSTEOPOROSIS
     Dosage: 25 MG, 1 /WEEK, ORAL
     Route: 048
     Dates: start: 20030706, end: 20030701
  2. INDAPAMIDE [Concomitant]
  3. MEDIATOR (BENFLUOREX HYDROCHLORIDE) [Concomitant]

REACTIONS (4)
  - ABDOMINAL PAIN [None]
  - ENTEROCOLITIS HAEMORRHAGIC [None]
  - RECTAL HAEMORRHAGE [None]
  - ULCER HAEMORRHAGE [None]
